FAERS Safety Report 24079441 (Version 1)
Quarter: 2024Q3

REPORT INFORMATION
  Report Type: Spontaneous
  Country: US (occurrence: US)
  Receive Date: 20240711
  Receipt Date: 20240711
  Transmission Date: 20241017
  Serious: No
  Sender: SANOFI AVENTIS
  Company Number: US-SA-SAC20240708000640

PATIENT
  Sex: Female
  Weight: 53.5 kg

DRUGS (1)
  1. DUPIXENT [Suspect]
     Active Substance: DUPILUMAB
     Indication: Illness
     Dosage: 300 MG, QW
     Route: 058

REACTIONS (3)
  - Throat irritation [Unknown]
  - Sensation of foreign body [Unknown]
  - Pharyngeal swelling [Unknown]
